FAERS Safety Report 9862638 (Version 3)
Quarter: 2014Q2

REPORT INFORMATION
  Report Type: Spontaneous
  Country: US (occurrence: US)
  Receive Date: 20140203
  Receipt Date: 20140408
  Transmission Date: 20141212
  Serious: Yes (Other)
  Sender: FDA-Public Use
  Company Number: US-BAXTER-2014BAX003505

PATIENT
  Sex: Male

DRUGS (1)
  1. DIANEAL LOW CALCIUM [Suspect]
     Indication: PERITONEAL DIALYSIS
     Dosage: 2 BAGS
     Route: 033
     Dates: start: 20130215

REACTIONS (6)
  - Peritonitis [Not Recovered/Not Resolved]
  - Influenza [Recovering/Resolving]
  - Fall [Unknown]
  - Dizziness [Unknown]
  - Peritoneal dialysis complication [Unknown]
  - Abdominal pain [Not Recovered/Not Resolved]
